FAERS Safety Report 8818559 (Version 1)
Quarter: 2012Q4

REPORT INFORMATION
  Report Type: 
  Country: US (occurrence: US)
  Receive Date: 20121001
  Receipt Date: 20121001
  Transmission Date: 20130627
  Serious: Yes (Other)
  Sender: FDA-Public Use
  Company Number: US-TEVA-361021USA

PATIENT
  Sex: Female
  Weight: 68.1 kg

DRUGS (4)
  1. PROAIR HFA [Suspect]
     Indication: ASTHMA
     Dates: start: 2009
  2. SYMBICORT [Concomitant]
     Indication: ASTHMA
     Dates: start: 2009
  3. INTAL [Concomitant]
     Indication: ASTHMA
     Dates: start: 2009
  4. INSULIN [Concomitant]
     Indication: DIABETES MELLITUS
     Dates: start: 2010

REACTIONS (5)
  - Tachycardia [Recovered/Resolved]
  - Type 1 diabetes mellitus [Not Recovered/Not Resolved]
  - Oropharyngeal pain [Recovered/Resolved]
  - Productive cough [Recovered/Resolved]
  - Job dissatisfaction [None]
